FAERS Safety Report 9049795 (Version 3)
Quarter: 2013Q2

REPORT INFORMATION
  Report Type: Spontaneous
  Country: US (occurrence: US)
  Receive Date: 20130205
  Receipt Date: 20130515
  Transmission Date: 20140414
  Serious: Yes (Congenital Anomaly, Other)
  Sender: FDA-Public Use
  Company Number: US-PFIZER INC-2013043804

PATIENT
  Sex: Male

DRUGS (30)
  1. ZOLOFT [Suspect]
     Indication: DEPRESSION
     Dosage: 50 MG, UNK
     Route: 064
     Dates: start: 1998, end: 1999
  2. ZOLOFT [Suspect]
     Indication: GENERALISED ANXIETY DISORDER
     Dosage: 50 MG, UNK
     Route: 064
     Dates: start: 19990722, end: 1999
  3. ZOLOFT [Suspect]
     Indication: MIGRAINE
     Dosage: 12.5 MG, UNK
     Route: 064
     Dates: start: 19991216, end: 19991223
  4. ZOLOFT [Suspect]
     Indication: HEADACHE
     Dosage: 25 MG, UNK
     Route: 064
     Dates: start: 19991223, end: 20000107
  5. ZOLOFT [Suspect]
     Indication: PANIC DISORDER
     Dosage: 50 MG, UNK
     Route: 064
     Dates: start: 20000107, end: 20000605
  6. ZOLOFT [Suspect]
     Indication: AGORAPHOBIA
     Dosage: 12.5 MG,
     Route: 064
     Dates: start: 20000605, end: 20000608
  7. ZOLOFT [Suspect]
     Dosage: 25 MG, UNK
     Route: 064
     Dates: start: 20000630, end: 20000707
  8. ZOLOFT [Suspect]
     Dosage: 50 MG, UNK
     Route: 064
     Dates: start: 20000707, end: 20000728
  9. ZOLOFT [Suspect]
     Dosage: 100 MG, UNK
     Route: 064
     Dates: start: 20000728, end: 20000908
  10. ZOLOFT [Suspect]
     Dosage: 150 MG, UNK
     Route: 064
     Dates: start: 20000909, end: 20001203
  11. ZOLOFT [Suspect]
     Dosage: 200 MG, 1X/DAY
     Route: 064
     Dates: start: 20001203, end: 20060815
  12. SERTRALINE HCL [Suspect]
     Indication: DEPRESSION
     Dosage: 100 MG, TWO DOSES DAILY
     Route: 064
     Dates: start: 20060820
  13. SERTRALINE HCL [Suspect]
     Indication: GENERALISED ANXIETY DISORDER
  14. SERTRALINE HCL [Suspect]
     Indication: MIGRAINE
  15. SERTRALINE HCL [Suspect]
     Indication: HEADACHE
  16. SERTRALINE HCL [Suspect]
     Indication: PANIC DISORDER
  17. SERTRALINE HCL [Suspect]
     Indication: AGORAPHOBIA
  18. FOLIC ACID [Concomitant]
     Indication: PREGNANCY
     Dosage: 1 MG, 1X/DAY
     Route: 064
     Dates: start: 2000, end: 2001
  19. FOLIC ACID [Concomitant]
     Dosage: 1 MG, 1X/DAY
     Route: 064
     Dates: start: 2004, end: 2005
  20. ZITHROMAX [Concomitant]
     Dosage: UNK
     Route: 064
  21. HYDROCODONE [Concomitant]
     Indication: SINUS HEADACHE
     Dosage: 7.5MG/500MG
     Route: 064
     Dates: start: 20040214, end: 20050301
  22. HYDROCODONE [Concomitant]
     Indication: HEADACHE
  23. MISOPROSTOL [Concomitant]
     Dosage: UNK
     Route: 064
  24. TYLENOL [Concomitant]
     Indication: MIGRAINE
     Dosage: UNK
     Route: 064
     Dates: start: 2000, end: 2005
  25. TYLENOL [Concomitant]
     Indication: HEADACHE
  26. Z-PAK [Concomitant]
     Indication: SINUSITIS
     Dosage: 250 MG, UNK
     Route: 064
     Dates: start: 20020131
  27. Z-PAK [Concomitant]
     Dosage: 250 MG, UNK
     Route: 064
     Dates: start: 20041209
  28. ROXICET [Concomitant]
     Indication: MIGRAINE
     Dosage: ONE TABLE SPOON
     Route: 064
     Dates: start: 20041111, end: 20050317
  29. PRENATAL VITAMINS [Concomitant]
     Indication: PREGNANCY
     Dosage: UNK
     Route: 064
     Dates: start: 2000, end: 2001
  30. PRENATAL VITAMINS [Concomitant]
     Dosage: UNK
     Route: 064
     Dates: start: 2004, end: 2005

REACTIONS (6)
  - Maternal exposure timing unspecified [Unknown]
  - Anomalous pulmonary venous connection [Unknown]
  - Patent ductus arteriosus [Unknown]
  - Atrial septal defect [Unknown]
  - Cardiomegaly [Unknown]
  - Premature baby [Unknown]
